FAERS Safety Report 15682181 (Version 1)
Quarter: 2018Q4

REPORT INFORMATION
  Report Type: Spontaneous
  Country: GB (occurrence: GB)
  Receive Date: 20181203
  Receipt Date: 20181203
  Transmission Date: 20190205
  Serious: Yes (Other)
  Sender: FDA-Public Use
  Company Number: GB-PFIZER INC-2018491618

PATIENT
  Age: 42 Year
  Sex: Female
  Weight: 53.52 kg

DRUGS (1)
  1. SERTRALINE HCL [Suspect]
     Active Substance: SERTRALINE HYDROCHLORIDE
     Indication: DEPRESSION
     Dosage: 50 MG, UNK
     Route: 048
     Dates: start: 20180920, end: 20181025

REACTIONS (11)
  - Abdominal pain upper [Unknown]
  - Gingival swelling [Unknown]
  - Pharyngeal oedema [Recovered/Resolved with Sequelae]
  - Malaise [Unknown]
  - Migraine [Recovered/Resolved with Sequelae]
  - Tongue eruption [Unknown]
  - Swollen tongue [Recovered/Resolved with Sequelae]
  - Oropharyngeal blistering [Recovered/Resolved with Sequelae]
  - Tongue blistering [Recovered/Resolved with Sequelae]
  - Suicidal ideation [Not Recovered/Not Resolved]
  - Diarrhoea [Not Recovered/Not Resolved]

NARRATIVE: CASE EVENT DATE: 20181021
